FAERS Safety Report 8904508 (Version 2)
Quarter: 2012Q4

REPORT INFORMATION
  Report Type: 
  Country: US (occurrence: US)
  Receive Date: 20121110
  Receipt Date: 20121115
  Transmission Date: 20130627
  Serious: No
  Sender: FDA-Public Use
  Company Number: US-B.I. PHARMACEUTICALS,INC./RIDGEFIELD-2012-BP-27369BP

PATIENT
  Age: 76 Year
  Sex: Female
  Weight: 55 kg

DRUGS (4)
  1. SPIRIVA [Suspect]
     Indication: CHRONIC OBSTRUCTIVE PULMONARY DISEASE
     Dosage: 18 mcg
     Route: 055
     Dates: start: 2011
  2. CVS SPECTA VITE SENIOR VITAMIN [Concomitant]
     Indication: VITAMIN SUPPLEMENTATION
     Route: 048
     Dates: start: 2002
  3. SYMBICORT [Concomitant]
     Indication: DYSPNOEA
     Route: 055
     Dates: start: 2012
  4. IPRATROPIUM [Concomitant]
     Indication: RHINORRHOEA
     Route: 045
     Dates: start: 2011

REACTIONS (3)
  - Cough [Not Recovered/Not Resolved]
  - Increased upper airway secretion [Not Recovered/Not Resolved]
  - Product quality issue [Recovered/Resolved]
